FAERS Safety Report 11846490 (Version 2)
Quarter: 2016Q1

REPORT INFORMATION
  Report Type: Report from Study
  Country: FR (occurrence: FR)
  Receive Date: 20151217
  Receipt Date: 20160113
  Transmission Date: 20160526
  Serious: Yes (Other)
  Sender: FDA-Public Use
  Company Number: FR-JNJFOC-20150118371

PATIENT
  Age: 38 Year
  Sex: Male
  Weight: 67 kg

DRUGS (31)
  1. ISENTRESS [Concomitant]
     Active Substance: RALTEGRAVIR POTASSIUM
     Indication: HIV INFECTION
     Dosage: 1 IN THE MORNING AND 1 IN THE EVENING.
     Route: 048
  2. ISENTRESS [Concomitant]
     Active Substance: RALTEGRAVIR POTASSIUM
     Indication: HIV INFECTION
     Dosage: 400
     Route: 048
  3. DICETEL [Concomitant]
     Active Substance: PINAVERIUM BROMIDE
     Indication: PRODUCT USED FOR UNKNOWN INDICATION
     Dosage: 1 IN THE MORNING AND EVENING.
     Route: 065
  4. PIRILENE [Concomitant]
     Active Substance: PYRAZINAMIDE
     Indication: TUBERCULOSIS
     Dosage: 4 IN THE MORNING.
     Route: 048
  5. METHADONE [Concomitant]
     Active Substance: METHADONE HYDROCHLORIDE
     Dosage: 20
     Route: 048
  6. NICOBION [Concomitant]
     Active Substance: NIACINAMIDE
     Indication: PRODUCT USED FOR UNKNOWN INDICATION
     Route: 065
  7. ACUPAN [Concomitant]
     Active Substance: NEFOPAM HYDROCHLORIDE
     Indication: PRODUCT USED FOR UNKNOWN INDICATION
     Route: 065
  8. LACTULOSE. [Concomitant]
     Active Substance: LACTULOSE
     Indication: PRODUCT USED FOR UNKNOWN INDICATION
     Route: 065
  9. TMC207 [Suspect]
     Active Substance: BEDAQUILINE
     Indication: TUBERCULOSIS
     Dosage: RECOMMENDED DOSAGE : 400 MG ONCE A DAY DURING 2 WEEKS THEN 200 MG 3 TIMES PER WEEK
     Route: 048
  10. TMC207 [Suspect]
     Active Substance: BEDAQUILINE
     Indication: TUBERCULOSIS
     Dosage: RECOMMENDED DOSAGE : 400 MG ONCE A DAY DURING 2 WEEKS THEN 200 MG 3 TIMES PER WEEK
     Route: 048
  11. LINEZOLID. [Suspect]
     Active Substance: LINEZOLID
     Indication: TUBERCULOSIS
     Route: 065
  12. BACTRIM [Concomitant]
     Active Substance: SULFAMETHOXAZOLE\TRIMETHOPRIM
     Route: 065
  13. METHADONE [Concomitant]
     Active Substance: METHADONE HYDROCHLORIDE
     Dosage: 1 IN THE MORNING.
     Route: 048
  14. AMIKLIN [Concomitant]
     Active Substance: AMIKACIN SULFATE
     Indication: ANTIBIOTIC PROPHYLAXIS
     Route: 042
  15. CYCLOSERINE. [Concomitant]
     Active Substance: CYCLOSERINE
     Indication: TUBERCULOSIS
     Route: 048
  16. CYCLOSERINE. [Concomitant]
     Active Substance: CYCLOSERINE
     Indication: TUBERCULOSIS
     Route: 048
  17. PRINCI-B [Concomitant]
     Dosage: 400
     Route: 065
  18. SPASFON [Concomitant]
     Active Substance: PHLOROGLUCINOL
     Route: 048
  19. ZYVOXID [Concomitant]
     Active Substance: LINEZOLID
     Indication: ANTIBIOTIC PROPHYLAXIS
     Route: 065
  20. IMOVANE [Concomitant]
     Active Substance: ZOPICLONE
     Dosage: 1 IN MORNING
     Route: 048
  21. TMC207 [Suspect]
     Active Substance: BEDAQUILINE
     Indication: TUBERCULOSIS
     Dosage: RECOMMENDED DOSAGE : 400 MG ONCE A DAY DURING 2 WEEKS THEN 200 MG 3 TIMES PER WEEK
     Route: 048
     Dates: start: 20150126
  22. ETHAMBUTOL [Concomitant]
     Active Substance: ETHAMBUTOL HYDROCHLORIDE
     Indication: ANTIBIOTIC PROPHYLAXIS
     Route: 065
  23. PASER [Concomitant]
     Active Substance: AMINOSALICYLIC ACID
     Indication: ANTIBIOTIC PROPHYLAXIS
     Route: 065
  24. VITAMIN B1-B6 [Concomitant]
     Route: 065
  25. LAMPRENE [Concomitant]
     Active Substance: CLOFAZIMINE
     Indication: TUBERCULOSIS
     Dosage: 1 AT MID DAY.
     Route: 048
     Dates: start: 201504
  26. CORTANCYL [Concomitant]
     Active Substance: PREDNISONE
     Dosage: 400??1 IN THE MORNING
     Route: 048
  27. GRANUPAS [Concomitant]
     Active Substance: AMINOSALICYLIC ACID
     Indication: TUBERCULOSIS
     Dosage: 1 IN THE MORNING AND EVENING.
     Route: 048
     Dates: start: 201501
  28. INEXIUM [Concomitant]
     Active Substance: ESOMEPRAZOLE
     Dosage: 20
     Route: 065
  29. TRUVADA [Concomitant]
     Active Substance: EMTRICITABINE\TENOFOVIR DISOPROXIL FUMARATE
     Indication: HIV INFECTION
     Dosage: 1 IN THE EVENING.
     Route: 065
  30. AMIKLIN [Concomitant]
     Active Substance: AMIKACIN SULFATE
     Indication: ANTIBIOTIC PROPHYLAXIS
     Route: 042
  31. CYCLOSERINE. [Concomitant]
     Active Substance: CYCLOSERINE
     Indication: TUBERCULOSIS
     Dosage: 2 IN THE MORNING 1 DAY/2
     Route: 048

REACTIONS (8)
  - Deafness [Unknown]
  - Neuropathy peripheral [Unknown]
  - Product use issue [Unknown]
  - Sinus bradycardia [Unknown]
  - Hepatocellular injury [Not Recovered/Not Resolved]
  - Erythema [Unknown]
  - Tuberculosis [Unknown]
  - Photosensitivity reaction [Unknown]

NARRATIVE: CASE EVENT DATE: 20150227
